FAERS Safety Report 7859012-8 (Version None)
Quarter: 2011Q4

REPORT INFORMATION
  Report Type: 
  Country: None (occurrence: None)
  Receive Date: 20111027
  Receipt Date: 20111018
  Transmission Date: 20120403
  Serious: Yes (Other)
  Sender: FDA-Public Use
  Company Number: US-US-EMD SERONO, INC.-7090901

PATIENT
  Sex: Male
  Weight: 103 kg

DRUGS (1)
  1. REBIF [Suspect]
     Indication: MULTIPLE SCLEROSIS
     Route: 058
     Dates: start: 20100709

REACTIONS (2)
  - IMPAIRED GASTRIC EMPTYING [None]
  - INJECTION SITE HAEMATOMA [None]
